FAERS Safety Report 5017558-4 (Version None)
Quarter: 2006Q2

REPORT INFORMATION
  Report Type: 
  Country: None (occurrence: None)
  Receive Date: 20060601
  Receipt Date: 20060601
  Transmission Date: 20061013
  Serious: Yes (Life-Threatening, Hospitalization)
  Sender: FDA-Public Use
  Company Number: None

PATIENT
  Age: 24 Year
  Sex: Female

DRUGS (1)
  1. ELSPAR [Suspect]
     Indication: ACUTE LYMPHOCYTIC LEUKAEMIA
     Dosage: 11,000 UNITS/M2  2X/WEEK  SQ
     Route: 058
     Dates: start: 20060505, end: 20060511

REACTIONS (5)
  - ABDOMINAL INFECTION [None]
  - ABDOMINAL PAIN [None]
  - BLOOD CULTURE POSITIVE [None]
  - NAUSEA [None]
  - PANCREATITIS NECROTISING [None]
